FAERS Safety Report 7129752-7 (Version None)
Quarter: 2010Q4

REPORT INFORMATION
  Report Type: 
  Country: None (occurrence: None)
  Receive Date: 20101130
  Receipt Date: 20101118
  Transmission Date: 20110411
  Serious: Yes (Death)
  Sender: FDA-Public Use
  Company Number: JP-ABBOTT-10P-087-0688172-00

PATIENT
  Age: 82 Year
  Sex: Male

DRUGS (7)
  1. LEUPROLIDE ACETATE [Suspect]
     Indication: PROSTATE CANCER STAGE IV
     Route: 058
     Dates: start: 20080718, end: 20090109
  2. BICALUTAMIDE [Concomitant]
     Indication: PROSTATE CANCER STAGE IV
     Route: 048
     Dates: start: 20080216, end: 20090206
  3. ZOMETA [Concomitant]
     Indication: PROSTATE CANCER STAGE IV
     Route: 042
     Dates: start: 20080222, end: 20090826
  4. PARIET [Concomitant]
     Indication: GASTRIC ULCER
     Route: 048
     Dates: end: 20090206
  5. WARFARIN [Concomitant]
     Indication: VENOUS THROMBOSIS LIMB
     Route: 048
     Dates: end: 20090206
  6. ALOSITOL [Concomitant]
     Indication: HYPERURICAEMIA
     Route: 048
     Dates: end: 20090206
  7. ARICEPT [Concomitant]
     Indication: PARKINSON'S DISEASE
     Dates: end: 20090206

REACTIONS (1)
  - PNEUMONIA [None]
